FAERS Safety Report 9325036 (Version 1)
Quarter: 2013Q2

REPORT INFORMATION
  Report Type: Spontaneous
  Country: DE (occurrence: None)
  Receive Date: 20130530
  Receipt Date: 20130530
  Transmission Date: 20140414
  Serious: Yes (Hospitalization, Other)
  Sender: FDA-Public Use
  Company Number: GER/GER/13/0029680

PATIENT
  Age: 0 Year
  Sex: Male
  Weight: 3.11 kg

DRUGS (2)
  1. CITALOPRAM [Suspect]
     Indication: PRODUCT USED FOR UNKNOWN INDICATION
     Route: 064
     Dates: start: 20120428, end: 20130204
  2. FOLSAEURE(FOLIC ACID) [Concomitant]

REACTIONS (5)
  - Meconium in amniotic fluid [None]
  - Neonatal respiratory distress syndrome [None]
  - Maternal drugs affecting foetus [None]
  - Drug withdrawal syndrome neonatal [None]
  - Hypoventilation neonatal [None]
